FAERS Safety Report 8170276-6 (Version None)
Quarter: 2012Q1

REPORT INFORMATION
  Report Type: 
  Country: None (occurrence: None)
  Receive Date: 20120104
  Receipt Date: 20111117
  Transmission Date: 20120608
  Serious: No
  Sender: FDA-Public Use
  Company Number: 2011HGS-002682

PATIENT
  Age: 50 Year
  Sex: Female
  Weight: 65.318 kg

DRUGS (15)
  1. PLAQUENIL (HYDROXYCHLOROQUINE SULFATE) (HYDROXYCHLOROQUINE SULFATE) [Concomitant]
  2. ULTRACET (ULTRACET) (PARACETAMOL, TRAMADOL HYDROCHLORIDE) [Concomitant]
  3. VITAMIN D (ERGOCALCIFEROL) (ERGOCALCIFEROL) [Concomitant]
  4. AMBIEN CR (ZOLPIDEM TARTRATE) (ZOLPIDEM TARTRATE) [Concomitant]
  5. METHOTREXATE [Concomitant]
  6. PREDNISONE [Concomitant]
  7. BENLYSTA [Suspect]
     Indication: SYSTEMIC LUPUS ERYTHEMATOSUS
     Dosage: 1 IN 14 D, INTRAVENOUS DRIP
     Route: 041
     Dates: start: 20110729, end: 20110729
  8. BENLYSTA [Suspect]
     Indication: SYSTEMIC LUPUS ERYTHEMATOSUS
     Dosage: 1 IN 14 D, INTRAVENOUS DRIP
     Route: 041
     Dates: start: 20110921, end: 20110921
  9. BENLYSTA [Suspect]
     Indication: SYSTEMIC LUPUS ERYTHEMATOSUS
     Dosage: 1 IN 14 D, INTRAVENOUS DRIP
     Route: 041
     Dates: start: 20110701, end: 20110701
  10. BENLYSTA [Suspect]
     Indication: SYSTEMIC LUPUS ERYTHEMATOSUS
     Dosage: 1 IN 14 D, INTRAVENOUS DRIP
     Route: 041
     Dates: start: 20110715, end: 20110715
  11. BENLYSTA [Suspect]
     Indication: SYSTEMIC LUPUS ERYTHEMATOSUS
     Dosage: 1 IN 14 D, INTRAVENOUS DRIP
     Route: 041
     Dates: start: 20110827, end: 20110827
  12. OMEPRAZOLE [Concomitant]
  13. BENLYSTA [Suspect]
  14. FOLIC ACID [Concomitant]
  15. HYDROCODONE (HYDROCODONE) (HYDROCODONE) [Concomitant]

REACTIONS (1)
  - BACK PAIN [None]
